FAERS Safety Report 4782377-0 (Version None)
Quarter: 2005Q3

REPORT INFORMATION
  Report Type: 
  Country: None (occurrence: None)
  Receive Date: 20050914
  Receipt Date: 20050706
  Transmission Date: 20060218
  Serious: Yes (Other)
  Sender: FDA-Public Use
  Company Number: 163-20785-05070123

PATIENT

DRUGS (7)
  1. THALOMID [Suspect]
     Indication: MULTIPLE MYELOMA
     Dosage: 200-400MG DAILY STARTING ON DAY 4, ORAL; SEE IMAGE
     Route: 048
     Dates: start: 20040503
  2. GENASENSE [Suspect]
     Indication: MULTIPLE MYELOMA
     Dosage: 5MG/KG/DAY ON DAYS 1-7, 22-28, AND 43-49, INDUCTION/INDUCTION PHASE, CIV, INTRAVENOUS DRIP; SEE IMAG
     Dates: start: 20040430
  3. GENASENSE [Suspect]
     Indication: MULTIPLE MYELOMA
     Dosage: 5MG/KG/DAY ON DAYS 1-7, 22-28, AND 43-49, INDUCTION/INDUCTION PHASE, CIV, INTRAVENOUS DRIP; SEE IMAG
     Dates: start: 20040611
  4. GENASENSE [Suspect]
     Indication: MULTIPLE MYELOMA
     Dosage: 5MG/KG/DAY ON DAYS 1-7, 22-28, AND 43-49, INDUCTION/INDUCTION PHASE, CIV, INTRAVENOUS DRIP; SEE IMAG
     Dates: start: 20040826
  5. GENASENSE [Suspect]
     Indication: MULTIPLE MYELOMA
     Dosage: 5MG/KG/DAY ON DAYS 1-7, 22-28, AND 43-49, INDUCTION/INDUCTION PHASE, CIV, INTRAVENOUS DRIP; SEE IMAG
     Dates: start: 20041130
  6. DEXAMETHASONE [Suspect]
     Indication: MULTIPLE MYELOMA
     Dosage: 40MG ON DAYS 4-7, 25-28, AND 46-49, ORAL; SEE IMAGE
     Route: 048
     Dates: start: 20040503
  7. DEXAMETHASONE [Suspect]
     Indication: MULTIPLE MYELOMA
     Dosage: 40MG ON DAYS 4-7, 25-28, AND 46-49, ORAL; SEE IMAGE
     Route: 048
     Dates: start: 20040725

REACTIONS (2)
  - HYPERGLYCAEMIA [None]
  - WHITE BLOOD CELL COUNT DECREASED [None]
